FAERS Safety Report 8767152 (Version 2)
Quarter: 2013Q1

REPORT INFORMATION
  Report Type: Report from Study
  Country: JP (occurrence: JP)
  Receive Date: 20120904
  Receipt Date: 20130108
  Transmission Date: 20140127
  Serious: Yes (Other)
  Sender: FDA-Public Use
  Company Number: JP-VERTEX PHARMACEUTICAL INC.-2012-020351

PATIENT
  Age: 69 Year
  Sex: Female

DRUGS (13)
  1. VX-950 (TELAPREVIR) [Suspect]
     Indication: CHRONIC HEPATITIS C
     Dosage: 1500 MG, QD
     Route: 048
     Dates: start: 20120307, end: 20120528
  2. RIBAVIRIN [Suspect]
     Indication: CHRONIC HEPATITIS C
     Dosage: 400 MG, QD
     Route: 048
     Dates: start: 20120307, end: 20120326
  3. RIBAVIRIN [Suspect]
     Dosage: 200 MG, QD
     Route: 048
     Dates: start: 20120327, end: 20120409
  4. RIBAVIRIN [Suspect]
     Dosage: 100 MG, QD
     Route: 048
     Dates: start: 20120410, end: 20120522
  5. RIBAVIRIN [Suspect]
     Dosage: 200 MG, UNK
     Route: 048
     Dates: start: 20120523, end: 20120806
  6. RIBAVIRIN [Suspect]
     Dosage: 200 MG
     Route: 048
     Dates: start: 20120807, end: 20120813
  7. RIBAVIRIN [Suspect]
     Dosage: 200 MG, QD
     Route: 048
     Dates: start: 20120814
  8. PEGINTERFERON ALFA-2B [Suspect]
     Indication: CHRONIC HEPATITIS C
     Dosage: 1.5 UNK, UNK
     Route: 058
     Dates: start: 20120307
  9. URSO                               /00465701/ [Concomitant]
     Dosage: 300 MG, QD
     Route: 048
  10. DIOVAN [Concomitant]
     Dosage: 80 MG, QD
  11. AMLODIN OD [Concomitant]
     Dosage: 5 MG, QD
  12. AMLODIN OD [Concomitant]
     Dosage: 2.5 MG, QD
  13. AMLODIN OD [Concomitant]
     Dosage: 300 MG, QD

REACTIONS (1)
  - Retinopathy [Recovered/Resolved]
